FAERS Safety Report 14476115 (Version 2)
Quarter: 2018Q1

REPORT INFORMATION
  Report Type: Spontaneous
  Country: US (occurrence: US)
  Receive Date: 20180201
  Receipt Date: 20180326
  Transmission Date: 20180509
  Serious: No
  Sender: FDA-Public Use
  Company Number: US-PFIZER INC-2018045494

PATIENT
  Age: 58 Year
  Sex: Female
  Weight: 68.4 kg

DRUGS (9)
  1. LORATADINE. [Concomitant]
     Active Substance: LORATADINE
     Dosage: 10MG ONCE NIGHTLY BY MOUTH
     Route: 048
  2. XANAX XR [Concomitant]
     Active Substance: ALPRAZOLAM
     Dosage: 1MG ONCE NIGHTLY BY MOUTH
     Route: 048
  3. LYRICA [Suspect]
     Active Substance: PREGABALIN
     Indication: FIBROMYALGIA
     Dosage: 150 MG, 1X/DAY
     Route: 048
     Dates: start: 2000
  4. MOBIC [Concomitant]
     Active Substance: MELOXICAM
     Dosage: 15MG ONCE NIGHTLY BY MOUTH
     Route: 048
  5. PRAVACHOL [Concomitant]
     Active Substance: PRAVASTATIN SODIUM
     Dosage: 20MG - 2 PILLS ONCE NIGHTLY BY MOUTH
     Route: 048
  6. TYLENOL EXTRA STRENGTH [Concomitant]
     Active Substance: ACETAMINOPHEN
     Dosage: UNK
  7. LYRICA [Suspect]
     Active Substance: PREGABALIN
     Dosage: 150 MG, 2X/DAY
     Route: 048
     Dates: start: 2017
  8. ZESTRIL [Concomitant]
     Active Substance: LISINOPRIL
  9. LISINOPRIL. [Concomitant]
     Active Substance: LISINOPRIL
     Dosage: 10MG ONCE NIGHTLY BY MOUTH
     Route: 048

REACTIONS (6)
  - Weight increased [Not Recovered/Not Resolved]
  - Drug dose omission [Unknown]
  - Pain [Unknown]
  - Wheezing [Unknown]
  - Condition aggravated [Unknown]
  - Fatigue [Unknown]

NARRATIVE: CASE EVENT DATE: 2017
